FAERS Safety Report 6033139-8 (Version None)
Quarter: 2009Q1

REPORT INFORMATION
  Report Type: 
  Country: None (occurrence: None)
  Receive Date: 20090109
  Receipt Date: 20090106
  Transmission Date: 20090719
  Serious: Yes (Hospitalization, Other)
  Sender: FDA-Public Use
  Company Number: US-ASTRAZENECA-2008UW26960

PATIENT
  Age: 82 Year
  Sex: Female
  Weight: 86.2 kg

DRUGS (1)
  1. ARIMIDEX [Suspect]
     Indication: BREAST CANCER
     Route: 048
     Dates: start: 20050101

REACTIONS (7)
  - BLOOD CHOLESTEROL INCREASED [None]
  - DIABETES MELLITUS [None]
  - ENDOMETRIOSIS [None]
  - HEARING IMPAIRED [None]
  - HEART RATE DECREASED [None]
  - HYPERTENSION [None]
  - MULTIPLE FRACTURES [None]
